FAERS Safety Report 9605063 (Version 1)
Quarter: 2013Q4

REPORT INFORMATION
  Report Type: Spontaneous
  Country: GB (occurrence: GB)
  Receive Date: 20131008
  Receipt Date: 20131008
  Transmission Date: 20140711
  Serious: Yes (Disabling)
  Sender: FDA-Public Use
  Company Number: GB-PFIZER INC-2013284542

PATIENT
  Age: 78 Year
  Sex: Female

DRUGS (7)
  1. INSPRA [Suspect]
     Indication: CARDIAC FAILURE
     Dosage: 12.5 MG, UNK
     Route: 048
     Dates: end: 20130808
  2. CLOPIDOGREL [Concomitant]
  3. SIMVASTATIN [Concomitant]
  4. LANSOPRAZOLE [Concomitant]
  5. CITALOPRAM [Concomitant]
  6. ALENDRONATE SODIUM [Concomitant]
  7. ADCAL-D3 [Concomitant]

REACTIONS (1)
  - Cerebrovascular accident [Recovered/Resolved with Sequelae]
